FAERS Safety Report 4772225-7 (Version None)
Quarter: 2005Q3

REPORT INFORMATION
  Report Type: 
  Country: None (occurrence: None)
  Receive Date: 20050919
  Receipt Date: 20050216
  Transmission Date: 20060218
  Serious: No
  Sender: FDA-Public Use
  Company Number: US-BRISTOL-MYERS SQUIBB COMPANY-12868741

PATIENT
  Sex: Male

DRUGS (1)
  1. DEFINITY [Suspect]
     Indication: EXERCISE ELECTROCARDIOGRAM
     Route: 040
     Dates: start: 20050210, end: 20050210

REACTIONS (2)
  - FLUSHING [None]
  - URTICARIA [None]
